FAERS Safety Report 9418547 (Version 2)
Quarter: 2013Q3

REPORT INFORMATION
  Report Type: Spontaneous
  Country: US (occurrence: US)
  Receive Date: 20130725
  Receipt Date: 20130812
  Transmission Date: 20140515
  Serious: No
  Sender: FDA-Public Use
  Company Number: US-BIOGENIDEC-2013BI068024

PATIENT
  Age: 58 Year
  Sex: Female

DRUGS (1)
  1. TYSABRI [Suspect]
     Indication: MULTIPLE SCLEROSIS
     Route: 042
     Dates: start: 20071001

REACTIONS (11)
  - Localised infection [Unknown]
  - Gait disturbance [Not Recovered/Not Resolved]
  - Muscle spasms [Not Recovered/Not Resolved]
  - Balance disorder [Recovered/Resolved]
  - Visual impairment [Recovered/Resolved]
  - Cognitive disorder [Recovered/Resolved]
  - Dyskinesia [Not Recovered/Not Resolved]
  - Herpes zoster [Recovered/Resolved]
  - Headache [Not Recovered/Not Resolved]
  - Malaise [Recovered/Resolved]
  - Vomiting [Recovered/Resolved]
